FAERS Safety Report 23992611 (Version 2)
Quarter: 2024Q3

REPORT INFORMATION
  Report Type: Spontaneous
  Country: US (occurrence: US)
  Receive Date: 20240620
  Receipt Date: 20240917
  Transmission Date: 20241017
  Serious: No
  Sender: BIOVITRUM
  Company Number: US-BIOVITRUM-2024-US-008764

PATIENT
  Age: 78 Year
  Sex: Female

DRUGS (16)
  1. VONJO [Suspect]
     Active Substance: PACRITINIB
     Indication: Myelofibrosis
     Dosage: 2 CAPSULES BY MOUTH TWICE DAILY
     Route: 048
     Dates: start: 20230801
  2. ACYLOVIR (ZOVIRAX) [Concomitant]
     Indication: Product used for unknown indication
  3. ZYLOPRIM [Concomitant]
     Active Substance: ALLOPURINOL
     Indication: Product used for unknown indication
  4. ASPIRIN [Concomitant]
     Active Substance: ASPIRIN
     Indication: Product used for unknown indication
  5. CALCIUM CITRATE [Concomitant]
     Active Substance: CALCIUM CITRATE
     Indication: Product used for unknown indication
  6. ZYRTEC [Concomitant]
     Active Substance: CETIRIZINE HYDROCHLORIDE
     Indication: Product used for unknown indication
  7. VITAMIN D3 [Concomitant]
     Active Substance: CHOLECALCIFEROL
     Indication: Product used for unknown indication
  8. COQ10 UBIQUINOL (COENZYME 010) [Concomitant]
     Indication: Product used for unknown indication
  9. HYDROXYUREA (DROXIA) [Concomitant]
     Indication: Product used for unknown indication
  10. LISINOPRIL (PRINIVIL,ZESTRIL) [Concomitant]
     Indication: Product used for unknown indication
  11. MULTIVITAMIN TABLET [Concomitant]
     Indication: Product used for unknown indication
  12. PRILOSEC [Concomitant]
     Active Substance: OMEPRAZOLE MAGNESIUM
     Indication: Product used for unknown indication
     Dosage: 20 MG DR CAPAULE
  13. ONDANSETRON ODT (ZOPRAN-ODT) [Concomitant]
     Indication: Product used for unknown indication
  14. ZOCOR [Concomitant]
     Active Substance: SIMVASTATIN
     Indication: Product used for unknown indication
  15. ASHWAGANDHA ROOT EXTRACT [Concomitant]
     Indication: Product used for unknown indication
  16. FLUTICASONE ( FLONASE) [Concomitant]
     Indication: Product used for unknown indication

REACTIONS (1)
  - Diarrhoea [Unknown]
